FAERS Safety Report 4719723-X (Version None)
Quarter: 2005Q3

REPORT INFORMATION
  Report Type: 
  Country: None (occurrence: None)
  Receive Date: 20050721
  Receipt Date: 20040629
  Transmission Date: 20060218
  Serious: Yes (Other)
  Sender: FDA-Public Use
  Company Number: US-GLAXOSMITHKLINE-A0516598A

PATIENT
  Sex: Female
  Weight: 125 kg

DRUGS (6)
  1. AVANDIA [Suspect]
     Route: 048
     Dates: start: 20000214, end: 20011228
  2. NORVASC [Concomitant]
  3. HUMULIN [Concomitant]
  4. PRAVACHOL [Concomitant]
  5. ZESTRIL [Concomitant]
  6. FUROSEMIDE [Concomitant]

REACTIONS (1)
  - CARDIAC FAILURE CONGESTIVE [None]
